FAERS Safety Report 17718184 (Version 2)
Quarter: 2020Q2

REPORT INFORMATION
  Report Type: Spontaneous
  Country: GB (occurrence: GB)
  Receive Date: 20200428
  Receipt Date: 20200612
  Transmission Date: 20200714
  Serious: Yes (Other)
  Sender: FDA-Public Use
  Company Number: GB-009507513-1908GBR000287

PATIENT
  Age: 41 Year
  Sex: Female

DRUGS (2)
  1. ETONOGESTREL IMPLANT- UNKNOWN [Suspect]
     Active Substance: ETONOGESTREL
     Dosage: 1 IMPLANT, RIGHT ARM
     Dates: start: 201605
  2. ETONOGESTREL IMPLANT- UNKNOWN [Suspect]
     Active Substance: ETONOGESTREL
     Dosage: 1 IMPLANT IN LEFT ARM
     Route: 059

REACTIONS (7)
  - Incorrect product administration duration [Unknown]
  - Device placement issue [Not Recovered/Not Resolved]
  - Implant site scar [Unknown]
  - Device embolisation [Not Recovered/Not Resolved]
  - Complication associated with device [Recovered/Resolved]
  - Amenorrhoea [Not Recovered/Not Resolved]
  - Wrong technique in device usage process [Unknown]

NARRATIVE: CASE EVENT DATE: 201605
